FAERS Safety Report 4360579-5 (Version None)
Quarter: 2004Q2

REPORT INFORMATION
  Report Type: 
  Country: None (occurrence: None)
  Receive Date: 20040519
  Receipt Date: 20040511
  Transmission Date: 20050107
  Serious: Yes (Hospitalization)
  Sender: FDA-Public Use
  Company Number: PHBS2004AR06479

PATIENT
  Age: 80 Year
  Sex: Female

DRUGS (2)
  1. EXELON [Suspect]
     Indication: ARTERIOSCLEROSIS
     Dosage: 1.5 MG/DAY
     Route: 048
     Dates: start: 20040401, end: 20040401
  2. RIVOTRIL [Concomitant]

REACTIONS (3)
  - DELIRIUM [None]
  - DISCOMFORT [None]
  - HALLUCINATION [None]
